FAERS Safety Report 12613261 (Version 1)
Quarter: 2016Q3

REPORT INFORMATION
  Report Type: Report from Study
  Country: US (occurrence: US)
  Receive Date: 20160802
  Receipt Date: 20160802
  Transmission Date: 20161109
  Serious: Yes (Other)
  Sender: FDA-Public Use
  Company Number: US-AMGEN-USASL2016096547

PATIENT
  Age: 73 Year
  Sex: Female

DRUGS (1)
  1. ENBREL [Suspect]
     Active Substance: ETANERCEPT
     Indication: RHEUMATOID ARTHRITIS
     Dosage: UNK UNK, QWK
     Route: 065

REACTIONS (8)
  - Spinal laminectomy [Unknown]
  - Arthralgia [Unknown]
  - Spinal operation [Unknown]
  - Foot deformity [Unknown]
  - Wrong technique in product usage process [Unknown]
  - Sleep disorder [Unknown]
  - Injection site pain [Unknown]
  - Depression [Unknown]

NARRATIVE: CASE EVENT DATE: 201507
